FAERS Safety Report 18316599 (Version 2)
Quarter: 2020Q4

REPORT INFORMATION
  Report Type: Spontaneous
  Country: SI (occurrence: SI)
  Receive Date: 20200928
  Receipt Date: 20201021
  Transmission Date: 20210113
  Serious: Yes (Hospitalization, Other)
  Sender: FDA-Public Use
  Company Number: SI-ASTRAZENECA-2020SF21321

PATIENT
  Age: 49 Year
  Sex: Female

DRUGS (4)
  1. VOXIN [Concomitant]
     Route: 065
  2. CONCOR [Concomitant]
     Active Substance: BISOPROLOL FUMARATE
     Route: 065
  3. ASPIRIN PROTECT [Suspect]
     Active Substance: ASPIRIN
     Dosage: UNK
     Route: 048
  4. TICAGRELOR. [Suspect]
     Active Substance: TICAGRELOR
     Route: 048

REACTIONS (3)
  - Chest pain [Recovered/Resolved]
  - Coronary artery stenosis [Recovered/Resolved]
  - Acute myocardial infarction [Recovered/Resolved]

NARRATIVE: CASE EVENT DATE: 202004
